FAERS Safety Report 6129357-0 (Version None)
Quarter: 2009Q1

REPORT INFORMATION
  Report Type: 
  Country: None (occurrence: None)
  Receive Date: 20090324
  Receipt Date: 20090313
  Transmission Date: 20090719
  Serious: Yes (Other)
  Sender: FDA-Public Use
  Company Number: CA-WYE-H08605509

PATIENT
  Age: 33 Year
  Sex: Female

DRUGS (5)
  1. ADVIL [Suspect]
     Indication: HEADACHE
     Dosage: 2 CAPSULES AS NEEDED
     Route: 048
     Dates: start: 20080101
  2. ADVIL [Suspect]
     Indication: ARTHRALGIA
     Dosage: 2 CAPSULES X 1
     Route: 048
     Dates: start: 20090215, end: 20090215
  3. ADVAIR HFA [Concomitant]
     Indication: ASTHMA
     Dosage: UNKNOWN
     Route: 065
     Dates: start: 19970101
  4. VENTOLIN [Concomitant]
     Indication: ASTHMA
     Dosage: UNKNOWN
     Route: 065
     Dates: start: 19760101
  5. SINGULAIR [Concomitant]
     Indication: ASTHMA
     Dosage: UNKNOWN
     Route: 065
     Dates: start: 19970101

REACTIONS (1)
  - SUPRAVENTRICULAR EXTRASYSTOLES [None]
